FAERS Safety Report 11813811 (Version 1)
Quarter: 2015Q4

REPORT INFORMATION
  Report Type: Spontaneous
  Country: US (occurrence: None)
  Receive Date: 20151208
  Receipt Date: 20151208
  Transmission Date: 20160305
  Serious: Yes (Other)
  Sender: FDA-Public Use
  Company Number: None

PATIENT
  Age: 1 Year
  Sex: Female
  Weight: 10.43 kg

DRUGS (1)
  1. CEFDINIR 125MG/5ML [Suspect]
     Active Substance: CEFDINIR
     Indication: EAR INFECTION
     Dosage: DOSE TWICE DAILY TAKEN BY MOUTH
     Route: 048
     Dates: start: 20151129, end: 20151130

REACTIONS (2)
  - Vulvovaginal mycotic infection [None]
  - Hypersensitivity [None]
